FAERS Safety Report 10334552 (Version 2)
Quarter: 2014Q3

REPORT INFORMATION
  Report Type: Spontaneous
  Country: SK (occurrence: SK)
  Receive Date: 20140723
  Receipt Date: 20140728
  Transmission Date: 20150326
  Serious: Yes (Life-Threatening, Hospitalization)
  Sender: FDA-Public Use
  Company Number: SK-B.I. PHARMACEUTICALS,INC./RIDGEFIELD-2014-BI-33442SK

PATIENT
  Age: 74 Year
  Sex: Male

DRUGS (7)
  1. PANTOPRAZOL MYLAN [Concomitant]
     Dosage: 40 MG
     Route: 048
  2. EUTHYROX [Concomitant]
     Active Substance: LEVOTHYROXINE SODIUM
     Dosage: 50 MCG
     Route: 048
  3. TALLITON [Concomitant]
     Dosage: 25 MG
     Route: 048
  4. LUCETAM [Concomitant]
     Dosage: 2400 MG
     Route: 048
  5. ENENLBIN RETARD [Concomitant]
     Dosage: 200 MG
     Route: 048
  6. PRADAXA [Suspect]
     Active Substance: DABIGATRAN ETEXILATE MESYLATE
     Indication: ATRIAL FIBRILLATION
     Dosage: 300 MG
     Route: 048
     Dates: end: 20140605
  7. PRENESSA [Concomitant]
     Active Substance: PERINDOPRIL
     Dosage: 8 MG
     Route: 048

REACTIONS (3)
  - Intestinal haemorrhage [Recovered/Resolved]
  - Iron deficiency anaemia [Not Recovered/Not Resolved]
  - Melaena [Recovered/Resolved]

NARRATIVE: CASE EVENT DATE: 20140605
